FAERS Safety Report 12556327 (Version 1)
Quarter: 2016Q3

REPORT INFORMATION
  Report Type: Spontaneous
  Country: CA (occurrence: CA)
  Receive Date: 20160714
  Receipt Date: 20160714
  Transmission Date: 20161109
  Serious: Yes (Congenital Anomaly)
  Sender: FDA-Public Use
  Company Number: PHHY2016CA092693

PATIENT
  Sex: Male
  Weight: 2 kg

DRUGS (8)
  1. DIOVAN HCT [Suspect]
     Active Substance: HYDROCHLOROTHIAZIDE\VALSARTAN
     Indication: FOETAL EXPOSURE DURING PREGNANCY
     Dosage: MATERNAL DOSE: 0.5 DF, QD
     Route: 064
  2. LAMOTRIGINE. [Concomitant]
     Active Substance: LAMOTRIGINE
     Indication: FOETAL EXPOSURE DURING PREGNANCY
     Route: 064
  3. METFORMIN [Concomitant]
     Active Substance: METFORMIN HYDROCHLORIDE
     Indication: FOETAL EXPOSURE DURING PREGNANCY
     Route: 064
  4. BUPROPION. [Concomitant]
     Active Substance: BUPROPION
     Indication: FOETAL EXPOSURE DURING PREGNANCY
     Route: 064
  5. LABETALOL [Concomitant]
     Active Substance: LABETALOL\LABETALOL HYDROCHLORIDE
     Indication: FOETAL EXPOSURE DURING PREGNANCY
     Route: 064
  6. OXAZEPAM. [Concomitant]
     Active Substance: OXAZEPAM
     Indication: FOETAL EXPOSURE DURING PREGNANCY
     Route: 064
  7. LATUDA [Concomitant]
     Active Substance: LURASIDONE HYDROCHLORIDE
     Indication: FOETAL EXPOSURE DURING PREGNANCY
     Route: 064
  8. VITAMIN B12 [Concomitant]
     Active Substance: CYANOCOBALAMIN
     Indication: FOETAL EXPOSURE DURING PREGNANCY
     Route: 064

REACTIONS (9)
  - Premature baby [Not Recovered/Not Resolved]
  - Rash pustular [Not Recovered/Not Resolved]
  - Talipes [Not Recovered/Not Resolved]
  - Foetal exposure during pregnancy [Not Recovered/Not Resolved]
  - Vena cava embolism [Not Recovered/Not Resolved]
  - Congenital melanosis [Not Recovered/Not Resolved]
  - Kidney enlargement [Not Recovered/Not Resolved]
  - Congenital nephrogenic diabetes insipidus [Not Recovered/Not Resolved]
  - Joint contracture [Not Recovered/Not Resolved]
